FAERS Safety Report 14580372 (Version 1)
Quarter: 2018Q1

REPORT INFORMATION
  Report Type: Spontaneous
  Country: US (occurrence: US)
  Receive Date: 20180228
  Receipt Date: 20180228
  Transmission Date: 20180509
  Serious: No
  Sender: FDA-Public Use
  Company Number: US-ASTRAZENECA-2018SE24527

PATIENT
  Age: 61 Year
  Sex: Male
  Weight: 86.2 kg

DRUGS (4)
  1. DALIRESP [Suspect]
     Active Substance: ROFLUMILAST
     Indication: CHRONIC OBSTRUCTIVE PULMONARY DISEASE
     Route: 048
     Dates: start: 2016, end: 20170811
  2. SPIRIVA [Concomitant]
     Active Substance: TIOTROPIUM BROMIDE MONOHYDRATE
     Indication: CHRONIC OBSTRUCTIVE PULMONARY DISEASE
     Route: 055
     Dates: start: 2012
  3. BREO ELLIPTA [Concomitant]
     Active Substance: FLUTICASONE FUROATE\VILANTEROL TRIFENATATE
     Indication: CHRONIC OBSTRUCTIVE PULMONARY DISEASE
     Route: 055
     Dates: start: 20180104
  4. PROAIR HFA [Concomitant]
     Active Substance: ALBUTEROL SULFATE
     Indication: ASTHMA
     Dosage: AS REQUIRED
     Route: 055

REACTIONS (10)
  - Product use issue [Unknown]
  - Chronic obstructive pulmonary disease [Unknown]
  - Influenza [Recovered/Resolved]
  - Hypokinesia [Unknown]
  - Oxygen saturation decreased [Unknown]
  - Aortic dilatation [Unknown]
  - Infection [Recovered/Resolved]
  - Dyspnoea [Unknown]
  - Productive cough [Unknown]
  - Sputum discoloured [Unknown]

NARRATIVE: CASE EVENT DATE: 2016
